FAERS Safety Report 4551035-X (Version None)
Quarter: 2005Q1

REPORT INFORMATION
  Report Type: 
  Country: None (occurrence: None)
  Receive Date: 20050113
  Receipt Date: 20040521
  Transmission Date: 20050727
  Serious: Yes (Death)
  Sender: FDA-Public Use
  Company Number: US-BRISTOL-MYERS SQUIBB COMPANY-12594081

PATIENT
  Age: 15 Year
  Sex: Male

DRUGS (5)
  1. DESYREL [Suspect]
     Route: 048
  2. ATIVAN [Concomitant]
  3. PAXIL [Concomitant]
  4. KLONOPIN [Concomitant]
  5. RISPERDAL [Concomitant]

REACTIONS (1)
  - DEATH [None]
